FAERS Safety Report 10564320 (Version 3)
Quarter: 2014Q4

REPORT INFORMATION
  Report Type: Spontaneous
  Country: US (occurrence: US)
  Receive Date: 20141104
  Receipt Date: 20141113
  Transmission Date: 20150529
  Serious: Yes (Hospitalization, Other)
  Sender: FDA-Public Use
  Company Number: US-GILEAD-2014-0119480

PATIENT
  Age: 64 Year
  Sex: Female

DRUGS (3)
  1. LETAIRIS [Suspect]
     Active Substance: AMBRISENTAN
     Indication: PULMONARY ARTERIAL HYPERTENSION
     Dosage: 10 MG, QD
     Route: 065
     Dates: start: 20130624
  2. TYVASO [Concomitant]
     Active Substance: TREPROSTINIL
     Dosage: UNK
     Dates: start: 201410
  3. ADCIRCA [Concomitant]
     Active Substance: TADALAFIL
     Indication: PULMONARY ARTERIAL HYPERTENSION
     Dosage: 40 MG, QD
     Dates: start: 20130827

REACTIONS (3)
  - Pulmonary arterial hypertension [Recovered/Resolved]
  - Contusion [Unknown]
  - Pain in extremity [Unknown]
